FAERS Safety Report 20883552 (Version 1)
Quarter: 2022Q2

REPORT INFORMATION
  Report Type: Spontaneous
  Country: CA (occurrence: CA)
  Receive Date: 20220527
  Receipt Date: 20220527
  Transmission Date: 20220721
  Serious: Yes (Other)
  Sender: FDA-Public Use
  Company Number: CA-SA-2021SA183103

PATIENT
  Age: 49 Year
  Sex: Male
  Weight: 106.59 kg

DRUGS (6)
  1. HYDROXYCHLOROQUINE [Suspect]
     Active Substance: HYDROXYCHLOROQUINE
     Dosage: 400 MG, QD
     Dates: start: 2015
  2. PREDNISONE [Suspect]
     Active Substance: PREDNISONE
     Dosage: 60 MG, QD
     Route: 048
     Dates: start: 202003
  3. PREDNISONE [Suspect]
     Active Substance: PREDNISONE
     Dosage: 40 MG, QD
     Route: 048
     Dates: start: 202003
  4. LEFLUNOMIDE [Suspect]
     Active Substance: LEFLUNOMIDE
     Dosage: UNK
  5. MYFORTIC [Suspect]
     Active Substance: MYCOPHENOLATE SODIUM
  6. METHOTREXATE SODIUM [Suspect]
     Active Substance: METHOTREXATE SODIUM
     Dosage: 1 DF
     Dates: start: 2016, end: 2019

REACTIONS (7)
  - Condition aggravated [Unknown]
  - Treatment failure [Unknown]
  - Disease recurrence [Unknown]
  - Abdominal discomfort [Unknown]
  - Vomiting [Unknown]
  - Liver function test increased [Unknown]
  - Drug ineffective [Unknown]
